FAERS Safety Report 7755714-2 (Version None)
Quarter: 2011Q3

REPORT INFORMATION
  Report Type: 
  Country: None (occurrence: None)
  Receive Date: 20110916
  Receipt Date: 20110906
  Transmission Date: 20111222
  Serious: No
  Sender: FDA-Public Use
  Company Number: PHEH2011US03455

PATIENT
  Sex: Male
  Weight: 113.38 kg

DRUGS (12)
  1. PLAVIX [Concomitant]
     Dosage: 75 MG, UNK
  2. TASIGNA [Suspect]
     Dosage: 300 MG, BID
  3. CARVEDILOL [Concomitant]
     Dosage: 6.25 MG, UNK
  4. ASPIRIN [Concomitant]
     Dosage: 81 MG, UNK
  5. DIAZEPAM [Concomitant]
     Dosage: 5 MG, UNK
  6. SPIRIVA [Concomitant]
  7. FLONASE [Concomitant]
     Dosage: 0.05 %, UNK
  8. TRAZODONE HCL [Concomitant]
     Dosage: 150 MG, UNK
  9. LIPITOR [Concomitant]
  10. ISOSORB [Concomitant]
     Dosage: 20 MG, UNK
  11. RANEXA [Concomitant]
     Dosage: 500 MG, UNK
  12. ENALAPRIL MALEATE [Concomitant]
     Dosage: 20 MG, UNK

REACTIONS (4)
  - RED BLOOD CELL COUNT DECREASED [None]
  - BONE PAIN [None]
  - MYALGIA [None]
  - ALOPECIA [None]
